FAERS Safety Report 19849474 (Version 1)
Quarter: 2021Q3

REPORT INFORMATION
  Report Type: Spontaneous
  Country: US (occurrence: US)
  Receive Date: 20210917
  Receipt Date: 20210917
  Transmission Date: 20211014
  Serious: Yes (Hospitalization)
  Sender: FDA-Public Use
  Company Number: NVSC2021US209570

PATIENT
  Age: 72 Year
  Sex: Male

DRUGS (2)
  1. RANITIDINE. [Suspect]
     Active Substance: RANITIDINE
     Indication: COUGH
     Dosage: 300 MG, QD
     Route: 048
     Dates: end: 201911
  2. RANITIDINE. [Suspect]
     Active Substance: RANITIDINE
     Indication: COUGH
     Dosage: 300 MG, QD
     Route: 048
     Dates: end: 201911

REACTIONS (3)
  - Product use in unapproved indication [Unknown]
  - Lymphoma [Unknown]
  - Bladder cancer [Unknown]

NARRATIVE: CASE EVENT DATE: 20010101
